FAERS Safety Report 10770481 (Version 3)
Quarter: 2015Q2

REPORT INFORMATION
  Report Type: Spontaneous
  Country: US (occurrence: US)
  Receive Date: 20150206
  Receipt Date: 20150423
  Transmission Date: 20150821
  Serious: No
  Sender: FDA-Public Use
  Company Number: US-UNITED THERAPEUTICS-UNT-2015-000694

PATIENT
  Age: 50 Year
  Sex: Female
  Weight: 44.44 kg

DRUGS (3)
  1. TRACLEER [Concomitant]
     Active Substance: BOSENTAN\BOSENTAN MONOHYDRATE
     Indication: PRODUCT USED FOR UNKNOWN INDICATION
  2. REMODULIN [Suspect]
     Active Substance: TREPROSTINIL
     Indication: PULMONARY ARTERIAL HYPERTENSION
     Dosage: 0.016 ?G/KGMIN, CONTINUING
     Route: 058
     Dates: start: 20121027, end: 20150119
  3. TYVASO [Suspect]
     Active Substance: TREPROSTINIL
     Indication: PULMONARY ARTERIAL HYPERTENSION
     Dosage: 18-54 MICROGRAMS, QID
     Dates: start: 20150114

REACTIONS (6)
  - Headache [Recovered/Resolved]
  - Cough [Not Recovered/Not Resolved]
  - Vision blurred [Unknown]
  - Therapy cessation [Unknown]
  - Localised oedema [Unknown]
  - Chest discomfort [Unknown]

NARRATIVE: CASE EVENT DATE: 201501
